FAERS Safety Report 16956658 (Version 1)
Quarter: 2019Q4

REPORT INFORMATION
  Report Type: Other
  Country: CA (occurrence: CA)
  Receive Date: 20191024
  Receipt Date: 20191024
  Transmission Date: 20200122
  Serious: Yes (Other)
  Sender: FDA-Public Use
  Company Number: CA-PFIZER INC-2019454544

PATIENT
  Age: 1 Day

DRUGS (1)
  1. PHENYTOIN SODIUM. [Suspect]
     Active Substance: PHENYTOIN SODIUM
     Indication: SEIZURE
     Dosage: UNK
     Route: 042

REACTIONS (3)
  - Skin discolouration [Recovered/Resolved]
  - Purple glove syndrome [Recovered/Resolved]
  - Peripheral swelling [Recovered/Resolved]
